FAERS Safety Report 8947257 (Version 6)
Quarter: 2013Q3

REPORT INFORMATION
  Report Type: Spontaneous
  Country: US (occurrence: US)
  Receive Date: 20121205
  Receipt Date: 20130806
  Transmission Date: 20140515
  Serious: Yes (Hospitalization, Other)
  Sender: FDA-Public Use
  Company Number: US-009507513-1212USA000733

PATIENT
  Sex: Female
  Weight: 49.43 kg

DRUGS (4)
  1. PEGINTRON [Suspect]
     Indication: HEPATITIS C
     Dosage: REDIPEN
     Route: 058
     Dates: start: 20121102, end: 2012
  2. PEGINTRON [Suspect]
     Dosage: REDIPEN UNK
  3. REBETOL [Suspect]
     Indication: HEPATITIS C
     Dosage: 5 DF, UNK
     Route: 048
     Dates: start: 20121102
  4. REBETOL [Suspect]
     Dosage: 4 DF, UNK
     Route: 048

REACTIONS (56)
  - Abscess limb [Recovered/Resolved]
  - Haemolysis [Unknown]
  - Hypotension [Unknown]
  - Pneumonia [Unknown]
  - Bacterial infection [Unknown]
  - Blood disorder [Unknown]
  - Convulsion [Not Recovered/Not Resolved]
  - Loss of consciousness [Not Recovered/Not Resolved]
  - Anaemia [Unknown]
  - Weight decreased [Recovering/Resolving]
  - Vomiting [Unknown]
  - Blood potassium decreased [Unknown]
  - Anaemia [Unknown]
  - Transfusion [Unknown]
  - Hypotension [Unknown]
  - Vomiting [Recovering/Resolving]
  - Skin fissures [Unknown]
  - Dry mouth [Unknown]
  - Dry throat [Unknown]
  - Joint swelling [Unknown]
  - Gait disturbance [Unknown]
  - Tremor [Unknown]
  - Oral pain [Unknown]
  - Tooth loss [Unknown]
  - Skin haemorrhage [Unknown]
  - Erythema [Unknown]
  - Laceration [Unknown]
  - Musculoskeletal disorder [Unknown]
  - Hypokalaemia [Unknown]
  - Hyponatraemia [Unknown]
  - Haemorrhage [Recovering/Resolving]
  - Mood swings [Unknown]
  - Local swelling [Recovering/Resolving]
  - Somnolence [Unknown]
  - Eye disorder [Not Recovered/Not Resolved]
  - Vomiting [Recovering/Resolving]
  - Influenza like illness [Unknown]
  - Arthralgia [Unknown]
  - Weight decreased [Unknown]
  - Dehydration [Unknown]
  - Dry skin [Unknown]
  - Nausea [Recovering/Resolving]
  - Dyspnoea [Not Recovered/Not Resolved]
  - Chills [Unknown]
  - Pyrexia [Unknown]
  - Headache [Unknown]
  - Malaise [Unknown]
  - Decreased appetite [Unknown]
  - Nausea [Unknown]
  - Blood potassium decreased [Unknown]
  - Parenteral nutrition [Unknown]
  - Anxiety [Unknown]
  - Depression [Unknown]
  - Stress [Unknown]
  - Transfusion [Unknown]
  - Blood disorder [Unknown]
